FAERS Safety Report 5971557-4 (Version None)
Quarter: 2008Q4

REPORT INFORMATION
  Report Type: 
  Country: None (occurrence: None)
  Receive Date: 20081201
  Receipt Date: 20080924
  Transmission Date: 20090506
  Serious: No
  Sender: FDA-Public Use
  Company Number: US-AMGEN-KDL303544

PATIENT
  Sex: Male

DRUGS (6)
  1. ENBREL [Suspect]
     Indication: PSORIATIC ARTHROPATHY
     Route: 058
     Dates: start: 20080409
  2. CELEBREX [Concomitant]
     Dates: start: 20080527
  3. FLEXERIL [Concomitant]
     Dates: start: 20080409
  4. ASPIRIN [Concomitant]
  5. MULTI-VITAMINS [Concomitant]
  6. SAW PALMETTO [Concomitant]

REACTIONS (5)
  - CONTUSION [None]
  - INJECTION SITE HAEMATOMA [None]
  - INJECTION SITE PAIN [None]
  - MIGRAINE [None]
  - VISION BLURRED [None]
